FAERS Safety Report 19415760 (Version 1)
Quarter: 2021Q2

REPORT INFORMATION
  Report Type: Spontaneous
  Country: US (occurrence: US)
  Receive Date: 20210614
  Receipt Date: 20210614
  Transmission Date: 20210717
  Serious: Yes (Death)
  Sender: FDA-Public Use
  Company Number: None

PATIENT
  Age: 63 Year
  Sex: Female

DRUGS (15)
  1. ZOLPIDEM [Concomitant]
     Active Substance: ZOLPIDEM TARTRATE
  2. PROMETHAZINE 25MG TABLET [Concomitant]
  3. HYDROXYZINE 25MG TABLET [Concomitant]
  4. FERRETTS 325MG TABLET [Concomitant]
  5. CLONAZEPAM 1MG TABLET [Concomitant]
     Active Substance: CLONAZEPAM
  6. ROSUVASTATIN 40MG TABLET [Concomitant]
  7. VELTASSA [Suspect]
     Active Substance: PATIROMER
     Indication: HYPERKALAEMIA
     Dosage: ?          OTHER FREQUENCY:Q TUES, THURS, SAT;?
     Route: 048
     Dates: start: 20210412, end: 20210527
  8. TRIAMCINOLONE 0.1% CREAM [Concomitant]
     Active Substance: TRIAMCINOLONE ACETONIDE
  9. GABAPENTIN 400MG CAPSULE [Concomitant]
  10. ELIQUIS [Concomitant]
     Active Substance: APIXABAN
  11. LABETALOL 200MG TABLET [Concomitant]
  12. LEVEMIR FLEX TOUCH PEN INSULINE [Concomitant]
  13. NOVOLOG FLEXPEN INSULIN [Concomitant]
  14. OMEPRAZOLE 20MG CAPSULE [Concomitant]
     Active Substance: OMEPRAZOLE
  15. TEMAZEPAM 7.5MG CAPSULE [Concomitant]

REACTIONS (1)
  - Death [None]

NARRATIVE: CASE EVENT DATE: 20210527
